FAERS Safety Report 20762307 (Version 1)
Quarter: 2022Q2

REPORT INFORMATION
  Report Type: Spontaneous
  Country: CN (occurrence: CN)
  Receive Date: 20220428
  Receipt Date: 20220428
  Transmission Date: 20220721
  Serious: Yes (Life-Threatening, Other)
  Sender: FDA-Public Use
  Company Number: CN-MLMSERVICE-20220414-3500552-1

PATIENT
  Age: 36 Year
  Sex: Female

DRUGS (3)
  1. CASPOFUNGIN [Suspect]
     Active Substance: CASPOFUNGIN
     Indication: Malignant melanoma
     Dosage: 3 CYCLE
  2. PACLITAXEL [Suspect]
     Active Substance: PACLITAXEL
     Indication: Malignant melanoma
     Dosage: 3 CYCLE
  3. SORAFENIB [Suspect]
     Active Substance: SORAFENIB
     Indication: Metastases to lung
     Dosage: 3 CYCLE

REACTIONS (1)
  - Treatment failure [Unknown]
